FAERS Safety Report 19889395 (Version 1)
Quarter: 2021Q3

REPORT INFORMATION
  Report Type: Spontaneous
  Country: US (occurrence: US)
  Receive Date: 20210927
  Receipt Date: 20210927
  Transmission Date: 20211014
  Serious: No
  Sender: FDA-Public Use
  Company Number: US-ASTELLAS-2021US025486

PATIENT
  Age: 65 Year
  Sex: Male

DRUGS (2)
  1. PADCEV [Suspect]
     Active Substance: ENFORTUMAB VEDOTIN-EJFV
     Dosage: 1.25 MG/M2, CYCLIC (DAYS 1, 8 OF 21 DAY)
     Route: 065
     Dates: start: 20201204, end: 20210402
  2. PADCEV [Suspect]
     Active Substance: ENFORTUMAB VEDOTIN-EJFV
     Indication: METASTATIC CARCINOMA OF THE BLADDER
     Dosage: 1.25 MG/M2, CYCLIC (DAYS 1, 8, 15)
     Route: 065
     Dates: start: 20201013

REACTIONS (2)
  - Dry skin [Recovered/Resolved]
  - Pruritus [Recovered/Resolved]

NARRATIVE: CASE EVENT DATE: 20201027
